FAERS Safety Report 8695101 (Version 2)
Quarter: 2014Q3

REPORT INFORMATION
  Report Type: Spontaneous
  Country: US (occurrence: US)
  Receive Date: 20120731
  Receipt Date: 20140807
  Transmission Date: 20150326
  Serious: Yes (Hospitalization, Other)
  Sender: FDA-Public Use
  Company Number: US-009507513-1207USA006625

PATIENT
  Sex: Female

DRUGS (1)
  1. NUVARING [Suspect]
     Active Substance: ETHINYL ESTRADIOL\ETONOGESTREL
     Indication: PRODUCT USED FOR UNKNOWN INDICATION
     Dosage: UNK
     Route: 067
     Dates: start: 200902

REACTIONS (10)
  - Osteoarthritis [Unknown]
  - Gastrooesophageal reflux disease [Unknown]
  - Cholelithiasis [Unknown]
  - Anxiety [Unknown]
  - Pulmonary hypertension [Unknown]
  - Electrocardiogram Q wave abnormal [Unknown]
  - Asthenia [Unknown]
  - Cholecystectomy [Unknown]
  - Pulmonary embolism [Unknown]
  - Menorrhagia [Unknown]

NARRATIVE: CASE EVENT DATE: 20100811
